FAERS Safety Report 13711123 (Version 1)
Quarter: 2017Q2

REPORT INFORMATION
  Report Type: Spontaneous
  Country: US (occurrence: US)
  Receive Date: 20170630
  Receipt Date: 20170630
  Transmission Date: 20170830
  Serious: No
  Sender: FDA-Public Use
  Company Number: None

PATIENT
  Age: 68 Year
  Sex: Male
  Weight: 80.3 kg

DRUGS (2)
  1. GABAPENTIN. [Suspect]
     Active Substance: GABAPENTIN
     Indication: NEURALGIA
     Dosage: 300 MG OTHER PO
     Route: 048
     Dates: start: 20160107, end: 20160129
  2. GABAPENTIN. [Suspect]
     Active Substance: GABAPENTIN
     Indication: PAIN
     Dosage: 300 MG OTHER PO
     Route: 048
     Dates: start: 20160107, end: 20160129

REACTIONS (1)
  - Urinary retention [None]

NARRATIVE: CASE EVENT DATE: 20160129
